FAERS Safety Report 21336001 (Version 1)
Quarter: 2022Q3

REPORT INFORMATION
  Report Type: Spontaneous
  Country: ES (occurrence: ES)
  Receive Date: 20220915
  Receipt Date: 20220915
  Transmission Date: 20221026
  Serious: Yes (Hospitalization)
  Sender: FDA-Public Use
  Company Number: ES-AEMPS-1241680

PATIENT
  Age: 70 Year
  Sex: Male
  Weight: 76 kg

DRUGS (2)
  1. GEMCITABINE [Suspect]
     Active Substance: GEMCITABINE
     Indication: Mantle cell lymphoma
     Dosage: 1 CYCLICAL, IN TOTAL, CYCLIC: FROM THE 1ST TO THE 14TH OF EACH MONTH (1000 MG/M2)
     Route: 040
     Dates: start: 20220114
  2. OXALIPLATIN [Suspect]
     Active Substance: OXALIPLATIN
     Indication: Mantle cell lymphoma
     Dosage: 1 CYCLICAL, IN TOTAL , CYCLIC: FROM 1 TO 14 OF EACH MONTH (85 MG/M2)
     Route: 040
     Dates: start: 20220114

REACTIONS (2)
  - Pancytopenia [Recovered/Resolved]
  - Acute kidney injury [Recovered/Resolved]

NARRATIVE: CASE EVENT DATE: 20220128
